APPROVED DRUG PRODUCT: HYDROCHLOROTHIAZIDE
Active Ingredient: HYDROCHLOROTHIAZIDE
Strength: 12.5MG
Dosage Form/Route: TABLET;ORAL
Application: A040907 | Product #003 | TE Code: AB
Applicant: UNICHEM LABORATORIES LTD
Approved: Apr 3, 2025 | RLD: No | RS: No | Type: RX